FAERS Safety Report 8817068 (Version 1)
Quarter: 2012Q4

REPORT INFORMATION
  Report Type: Spontaneous
  Country: US (occurrence: None)
  Receive Date: 20121003
  Receipt Date: 20121003
  Transmission Date: 20130627
  Serious: No
  Sender: FDA-Public Use
  Company Number: None

PATIENT
  Age: 63 Year
  Sex: Female

DRUGS (1)
  1. COPAXONE TEVA [Suspect]
     Indication: MS
     Dosage: 20 MG DAILY SQ
     Route: 058
     Dates: start: 20120622, end: 20120925

REACTIONS (7)
  - Drug hypersensitivity [None]
  - Feeling abnormal [None]
  - Paraesthesia [None]
  - Burning sensation [None]
  - Dizziness [None]
  - Dyspnoea [None]
  - Altered state of consciousness [None]
